FAERS Safety Report 6113248-5 (Version None)
Quarter: 2009Q1

REPORT INFORMATION
  Report Type: 
  Country: None (occurrence: None)
  Receive Date: 20090312
  Receipt Date: 20090225
  Transmission Date: 20090719
  Serious: Yes (Hospitalization)
  Sender: FDA-Public Use
  Company Number: FR-GENENTECH-278563

PATIENT
  Sex: Male

DRUGS (4)
  1. AVASTIN [Suspect]
     Indication: DRUG USE FOR UNKNOWN INDICATION
     Dosage: 600 MG, UNK
     Route: 042
     Dates: start: 20080725, end: 20080725
  2. FLUOROURACIL [Suspect]
     Indication: DRUG USE FOR UNKNOWN INDICATION
     Dosage: 4850 MG, UNK
     Route: 042
     Dates: start: 20080725, end: 20080725
  3. OXALIPLATIN [Suspect]
     Indication: DRUG USE FOR UNKNOWN INDICATION
     Dosage: 138 MG, UNK
     Route: 042
     Dates: start: 20080725, end: 20080725
  4. CETUXIMAB [Suspect]
     Indication: DRUG USE FOR UNKNOWN INDICATION
     Dosage: 865 MG, UNK
     Route: 042
     Dates: start: 20080725, end: 20080725

REACTIONS (3)
  - NAUSEA [None]
  - RADIATION MUCOSITIS [None]
  - VOMITING [None]
